FAERS Safety Report 6216821-9 (Version None)
Quarter: 2009Q2

REPORT INFORMATION
  Report Type: 
  Country: None (occurrence: None)
  Receive Date: 20090603
  Receipt Date: 20090603
  Transmission Date: 20091009
  Serious: Yes (Life-Threatening)
  Sender: FDA-Public Use
  Company Number: None

PATIENT
  Sex: Female
  Weight: 74.8435 kg

DRUGS (2)
  1. DIVALPROEX EC 250MG 2XADAY GENERIC FOR DEPAKOTE [Suspect]
     Indication: EPILEPSY
     Dosage: 250MG 2XADAY MOUTH
     Route: 048
     Dates: start: 20080901
  2. DIVALPROEX EC 250MG 2XADAY GENERIC FOR DEPAKOTE [Suspect]
     Indication: EPILEPSY
     Dosage: 250MG 2XADAY MOUTH
     Route: 048
     Dates: start: 20090201

REACTIONS (4)
  - CONFUSIONAL STATE [None]
  - FATIGUE [None]
  - FEELING ABNORMAL [None]
  - PRODUCT SUBSTITUTION ISSUE [None]
